FAERS Safety Report 11360574 (Version 2)
Quarter: 2015Q3

REPORT INFORMATION
  Report Type: Report from Study
  Country: US (occurrence: US)
  Receive Date: 20150810
  Receipt Date: 20150901
  Transmission Date: 20151125
  Serious: No
  Sender: FDA-Public Use
  Company Number: PHEH2015US011920

PATIENT
  Age: 42 Year
  Sex: Female

DRUGS (4)
  1. EXTAVIA [Suspect]
     Active Substance: INTERFERON BETA-1B
     Dosage: 0.75 ML, (WEEK 5-6: 0.1875 MG) QOD
     Route: 058
  2. EXTAVIA [Suspect]
     Active Substance: INTERFERON BETA-1B
     Dosage: 1 ML, (WEEK 7+:0.25 MG) QOD
     Route: 058
  3. EXTAVIA [Suspect]
     Active Substance: INTERFERON BETA-1B
     Dosage: 0.5 ML, (WEEK 3-4:0.25 MG) QOD
     Route: 058
  4. EXTAVIA [Suspect]
     Active Substance: INTERFERON BETA-1B
     Indication: MULTIPLE SCLEROSIS
     Dosage: 0.25 ML, (WEEK 1-2:0.0625 MG) QOD
     Route: 058
     Dates: start: 20150522

REACTIONS (2)
  - Headache [Unknown]
  - Injection site erythema [Unknown]

NARRATIVE: CASE EVENT DATE: 20150523
